FAERS Safety Report 18192867 (Version 1)
Quarter: 2020Q3

REPORT INFORMATION
  Report Type: Spontaneous
  Country: US (occurrence: US)
  Receive Date: 20200825
  Receipt Date: 20200825
  Transmission Date: 20201103
  Serious: Yes (Hospitalization, Disabling)
  Sender: FDA-Public Use
  Company Number: None

PATIENT
  Age: 38 Year
  Sex: Female
  Weight: 83.7 kg

DRUGS (9)
  1. ZYRTEC [Concomitant]
     Active Substance: CETIRIZINE HYDROCHLORIDE
  2. TOPAMAX [Concomitant]
     Active Substance: TOPIRAMATE
  3. XANAX [Concomitant]
     Active Substance: ALPRAZOLAM
  4. ALBUTEROL. [Concomitant]
     Active Substance: ALBUTEROL
  5. UBRELVY [Concomitant]
     Active Substance: UBROGEPANT
  6. VITAMIN D [Concomitant]
     Active Substance: VITAMIN D NOS
  7. ETONOGESTREL/ETHINYL ESTRADIOL [Suspect]
     Active Substance: ETHINYL ESTRADIOL\ETONOGESTREL
     Indication: DYSMENORRHOEA
     Dosage: ?          QUANTITY:1 RING;OTHER FREQUENCY:INSERT FOR 3 WEEKS;?
     Route: 067
     Dates: start: 20200126, end: 20200801
  8. ETONOGESTREL/ETHINYL ESTRADIOL [Suspect]
     Active Substance: ETHINYL ESTRADIOL\ETONOGESTREL
     Indication: MENORRHAGIA
     Dosage: ?          QUANTITY:1 RING;OTHER FREQUENCY:INSERT FOR 3 WEEKS;?
     Route: 067
     Dates: start: 20200126, end: 20200801
  9. PROBIOTIC [Concomitant]
     Active Substance: PROBIOTICS NOS

REACTIONS (23)
  - Grief reaction [None]
  - Depression [None]
  - Product quality issue [None]
  - Product substitution issue [None]
  - Medical device site discomfort [None]
  - Apathy [None]
  - Memory impairment [None]
  - Amnesia [None]
  - Aphasia [None]
  - Sexual dysfunction [None]
  - Irritability [None]
  - Abortion spontaneous [None]
  - Fatigue [None]
  - Weight increased [None]
  - Skin odour abnormal [None]
  - Feeling abnormal [None]
  - Disturbance in attention [None]
  - Impaired driving ability [None]
  - Libido decreased [None]
  - Therapy interrupted [None]
  - Pregnancy [None]
  - Affective disorder [None]
  - Migraine [None]

NARRATIVE: CASE EVENT DATE: 20200625
